FAERS Safety Report 9463089 (Version 1)
Quarter: 2013Q3

REPORT INFORMATION
  Report Type: Spontaneous
  Country: US (occurrence: US)
  Receive Date: 20130816
  Receipt Date: 20130816
  Transmission Date: 20140515
  Serious: Yes (Other)
  Sender: FDA-Public Use
  Company Number: CHPA2013US012850

PATIENT
  Age: 81 Year
  Sex: Male

DRUGS (2)
  1. EXCEDRIN ES BACK + BODY [Suspect]
     Indication: BACK PAIN
     Dosage: 4 DF, QD
     Route: 048
  2. TYLENOL [Concomitant]
     Indication: MYALGIA
     Dosage: UNK, QD

REACTIONS (3)
  - Trigeminal neuralgia [Not Recovered/Not Resolved]
  - Expired drug administered [Unknown]
  - Drug administration error [Unknown]
